FAERS Safety Report 16063991 (Version 2)
Quarter: 2019Q1

REPORT INFORMATION
  Report Type: Report from Study
  Country: FR (occurrence: FR)
  Receive Date: 20190312
  Receipt Date: 20190315
  Transmission Date: 20190418
  Serious: Yes (Death, Other)
  Sender: FDA-Public Use
  Company Number: FR-009507513-1512FRA003819

PATIENT
  Age: 83 Year
  Sex: Female
  Weight: 152 kg

DRUGS (1)
  1. PEMBROLIZUMAB. [Suspect]
     Active Substance: PEMBROLIZUMAB
     Indication: METASTATIC MALIGNANT MELANOMA
     Dosage: 300 MILLIGRAM, Q3W, STRENTGH: 2 MG/KG
     Dates: start: 20150720, end: 20171108

REACTIONS (5)
  - Rheumatic disorder [Recovering/Resolving]
  - Arthralgia [Recovering/Resolving]
  - Lower respiratory tract infection [Fatal]
  - Synovitis [Recovering/Resolving]
  - Synovitis [Recovered/Resolved]

NARRATIVE: CASE EVENT DATE: 20150902
